FAERS Safety Report 13211330 (Version 1)
Quarter: 2017Q1

REPORT INFORMATION
  Report Type: Spontaneous
  Country: US (occurrence: US)
  Receive Date: 20170209
  Receipt Date: 20170209
  Transmission Date: 20170428
  Serious: No
  Sender: FDA-Public Use
  Company Number: US-ALLERGAN-1662230US

PATIENT
  Sex: Male

DRUGS (1)
  1. BOTOX [Suspect]
     Active Substance: ONABOTULINUMTOXINA
     Indication: TRIGEMINAL NEURALGIA
     Dosage: UNK, SINGLE
     Route: 030
     Dates: start: 20160329, end: 20160329

REACTIONS (9)
  - Balance disorder [Unknown]
  - Off label use [Unknown]
  - Ear discomfort [Unknown]
  - Diplopia [Unknown]
  - Ocular discomfort [Unknown]
  - Feeling abnormal [Unknown]
  - Cognitive disorder [Unknown]
  - Drug hypersensitivity [Unknown]
  - Visual impairment [Unknown]

NARRATIVE: CASE EVENT DATE: 20160329
